FAERS Safety Report 17637870 (Version 3)
Quarter: 2020Q2

REPORT INFORMATION
  Report Type: Spontaneous
  Country: PK (occurrence: PK)
  Receive Date: 20200407
  Receipt Date: 20200514
  Transmission Date: 20200713
  Serious: Yes (Other)
  Sender: FDA-Public Use
  Company Number: PK-PFIZER INC-2020138544

PATIENT
  Age: 31 Year
  Sex: Female
  Weight: 67 kg

DRUGS (2)
  1. MERONEM [Suspect]
     Active Substance: MEROPENEM
     Dosage: 1 G, UNK
     Route: 042
  2. PANADOL [Concomitant]
     Active Substance: ACETAMINOPHEN
     Dosage: 500 MG, UNK

REACTIONS (6)
  - Typhoid fever [Unknown]
  - Nausea [Unknown]
  - Vomiting [Unknown]
  - Cough [Unknown]
  - Pruritus [Unknown]
  - Hypersensitivity [Unknown]
